FAERS Safety Report 13567979 (Version 1)
Quarter: 2017Q2

REPORT INFORMATION
  Report Type: Report from Study
  Country: CA (occurrence: CA)
  Receive Date: 20170522
  Receipt Date: 20170522
  Transmission Date: 20170830
  Serious: Yes (Other)
  Sender: FDA-Public Use
  Company Number: CA-GLAXOSMITHKLINE-CA2017GSK074662

PATIENT
  Sex: Female

DRUGS (9)
  1. ENBREL [Concomitant]
     Active Substance: ETANERCEPT
  2. INDOMETHACIN. [Concomitant]
     Active Substance: INDOMETHACIN
  3. CELEBREX [Concomitant]
     Active Substance: CELECOXIB
  4. DICLOFENAC SODIUM. [Suspect]
     Active Substance: DICLOFENAC SODIUM
     Indication: PRODUCT USED FOR UNKNOWN INDICATION
  5. STELARA [Concomitant]
     Active Substance: USTEKINUMAB
  6. MOBICOX [Concomitant]
     Active Substance: MELOXICAM
  7. IBUPROFEN. [Concomitant]
     Active Substance: IBUPROFEN
  8. MELOXICAM. [Concomitant]
     Active Substance: MELOXICAM
  9. METHOTREXATE. [Concomitant]
     Active Substance: METHOTREXATE

REACTIONS (1)
  - Drug hypersensitivity [Unknown]
